FAERS Safety Report 11216572 (Version 1)
Quarter: 2015Q2

REPORT INFORMATION
  Report Type: Spontaneous
  Country: US (occurrence: US)
  Receive Date: 20150624
  Receipt Date: 20150624
  Transmission Date: 20150821
  Serious: No
  Sender: FDA-Public Use
  Company Number: US-BAYER-2015-361639

PATIENT
  Age: 59 Year
  Sex: Female

DRUGS (1)
  1. MIRENA [Suspect]
     Active Substance: LEVONORGESTREL
     Indication: CONTRACEPTION
     Dosage: 20 MCG/24HR, CONT
     Route: 015
     Dates: start: 2005

REACTIONS (3)
  - Device issue [Not Recovered/Not Resolved]
  - Uterine cervix stenosis [Not Recovered/Not Resolved]
  - Device misuse [Not Recovered/Not Resolved]

NARRATIVE: CASE EVENT DATE: 2010
